FAERS Safety Report 24985533 (Version 2)
Quarter: 2025Q3

REPORT INFORMATION
  Report Type: Report from Study
  Country: US (occurrence: None)
  Receive Date: 20250219
  Receipt Date: 20250810
  Transmission Date: 20251020
  Serious: No
  Sender: ALEXION PHARMACEUTICALS
  Company Number: US-AstraZeneca-2015SE07545

PATIENT
  Sex: Female
  Weight: 44.452 kg

DRUGS (3)
  1. NEXIUM [Suspect]
     Active Substance: ESOMEPRAZOLE MAGNESIUM
     Indication: Gastrooesophageal reflux disease
     Dosage: 40 MILLIGRAM, QD
     Dates: start: 201412
  2. NEXIUM [Suspect]
     Active Substance: ESOMEPRAZOLE MAGNESIUM
     Indication: Gastrooesophageal reflux disease
     Dosage: 40 MILLIGRAM, BID
     Dates: start: 20150115, end: 20150118
  3. NEXIUM [Suspect]
     Active Substance: ESOMEPRAZOLE MAGNESIUM
     Dosage: 40 MILLIGRAM, QD
     Dates: start: 20150118

REACTIONS (10)
  - Illness [Unknown]
  - Headache [Unknown]
  - Dizziness [Unknown]
  - Chest pain [Unknown]
  - Pain [Unknown]
  - Ocular hyperaemia [Unknown]
  - Tinnitus [Unknown]
  - Body height decreased [Unknown]
  - Nausea [Unknown]
  - Off label use [Unknown]
